FAERS Safety Report 11663971 (Version 1)
Quarter: 2015Q4

REPORT INFORMATION
  Report Type: Spontaneous
  Country: US (occurrence: None)
  Receive Date: 20151026
  Receipt Date: 20151026
  Transmission Date: 20160304
  Serious: Yes (Other)
  Sender: FDA-Public Use
  Company Number: None

PATIENT
  Age: 60 Year
  Sex: Female
  Weight: 68.04 kg

DRUGS (13)
  1. OXYGEN. [Concomitant]
     Active Substance: OXYGEN
  2. ALBUTEROL. [Concomitant]
     Active Substance: ALBUTEROL
  3. POTASSIUM [Concomitant]
     Active Substance: POTASSIUM
  4. PROAIR HFA [Concomitant]
     Active Substance: ALBUTEROL SULFATE
  5. PROSAC [Concomitant]
  6. CALCIUM [Concomitant]
     Active Substance: CALCIUM
  7. FEMHRT [Concomitant]
     Active Substance: ETHINYL ESTRADIOL\NORETHINDRONE ACETATE
  8. XANAX [Concomitant]
     Active Substance: ALPRAZOLAM
  9. TOPEROL [Concomitant]
  10. DULEARA [Concomitant]
  11. LEVOFLOXACIN 500 MG [Suspect]
     Active Substance: LEVOFLOXACIN
     Indication: SINUSITIS
     Route: 048
     Dates: start: 20130201, end: 20130301
  12. VITAMIN D [Concomitant]
     Active Substance: CHOLECALCIFEROL
  13. MULTI-VITAMIN [Concomitant]
     Active Substance: .ALPHA.-TOCOPHEROL ACETATE, DL-\ASCORBIC ACID\CYANOCOBALAMIN\FLUORIDE ION\FOLIC ACID\NIACIN\PYRIDOXINE\RIBOFLAVIN\THIAMINE\VITAMIN A\VITAMIN D

REACTIONS (2)
  - Dysstasia [None]
  - Pain in extremity [None]

NARRATIVE: CASE EVENT DATE: 20130201
